FAERS Safety Report 4633572-2 (Version None)
Quarter: 2005Q2

REPORT INFORMATION
  Report Type: 
  Country: None (occurrence: None)
  Receive Date: 20050411
  Receipt Date: 20050411
  Transmission Date: 20051028
  Serious: Yes (Life-Threatening)
  Sender: FDA-Public Use
  Company Number: None

PATIENT
  Sex: Female
  Weight: 56.6996 kg

DRUGS (1)
  1. D-PENICILLAMINE [Suspect]
     Dosage: 2       2X DAILY   ORAL
     Route: 048
     Dates: start: 20040225, end: 20041117

REACTIONS (2)
  - DERMATITIS EXFOLIATIVE [None]
  - PEMPHIGUS [None]
